FAERS Safety Report 4415312-5 (Version None)
Quarter: 2004Q3

REPORT INFORMATION
  Report Type: 
  Country: None (occurrence: None)
  Receive Date: 20040730
  Receipt Date: 20040716
  Transmission Date: 20050211
  Serious: Yes (Hospitalization)
  Sender: FDA-Public Use
  Company Number: L04-NLD-03182-02

PATIENT
  Sex: Male
  Weight: 2.109 kg

DRUGS (4)
  1. PROPESS (DINOPROSTONE) [Suspect]
     Indication: CERVIX DISORDER
     Dosage: 10 MG QD TRANSPACENTAL
     Route: 064
  2. PROPESS (DINOPROSTONE) [Suspect]
     Indication: LABOUR INDUCTION
     Dosage: 10 MG QD TRANSPACENTAL
     Route: 064
  3. PROPESS (DINOPROSTONE) [Suspect]
     Indication: PRE-ECLAMPSIA
     Dosage: 10 MG QD TRANSPACENTAL
     Route: 064
  4. LABETALOL HCL [Concomitant]

REACTIONS (9)
  - APGAR SCORE LOW [None]
  - BRADYCARDIA FOETAL [None]
  - CAESAREAN SECTION [None]
  - DRUG EXPOSURE DURING PREGNANCY [None]
  - EPILEPSY [None]
  - FOETAL ACIDOSIS [None]
  - NEONATAL DISORDER [None]
  - PLACENTAL INSUFFICIENCY [None]
  - PREMATURE BABY [None]
